FAERS Safety Report 4421097-9 (Version None)
Quarter: 2004Q3

REPORT INFORMATION
  Report Type: 
  Country: None (occurrence: None)
  Receive Date: 20040803
  Receipt Date: 20040719
  Transmission Date: 20050211
  Serious: Yes (Hospitalization)
  Sender: FDA-Public Use
  Company Number: 201725

PATIENT
  Age: 60 Year
  Sex: Female
  Weight: 68.0396 kg

DRUGS (3)
  1. AVONEX [Suspect]
     Indication: MULTIPLE SCLEROSIS
     Dosage: 30 MCG QW IM
     Route: 030
     Dates: start: 20040201
  2. SYNTHROID [Concomitant]
  3. LOPRESSOR [Concomitant]

REACTIONS (5)
  - ERYTHEMA [None]
  - INJECTION SITE RASH [None]
  - INJECTION SITE VESICLES [None]
  - PNEUMONIA [None]
  - RASH MACULAR [None]
